FAERS Safety Report 24386118 (Version 1)
Quarter: 2024Q4

REPORT INFORMATION
  Report Type: Spontaneous
  Country: US (occurrence: US)
  Receive Date: 20241001
  Receipt Date: 20241001
  Transmission Date: 20250115
  Serious: Yes (Other)
  Sender: PURDUE
  Company Number: US-PURDUE-USA-2024-0312193

PATIENT
  Age: 17 Year
  Sex: Male

DRUGS (2)
  1. LISDEXAMFETAMINE DIMESYLATE [Suspect]
     Active Substance: LISDEXAMFETAMINE DIMESYLATE
     Indication: Attention deficit hyperactivity disorder
     Dosage: 30 MILLIGRAM, DAILY
     Route: 048
  2. SERTRALINE [Suspect]
     Active Substance: SERTRALINE HYDROCHLORIDE
     Indication: Obsessive-compulsive disorder
     Dosage: UNK
     Route: 065

REACTIONS (6)
  - Syncope [Unknown]
  - Self-destructive behaviour [Unknown]
  - Muscle strain [Unknown]
  - Rectal prolapse [Unknown]
  - Weight decreased [Unknown]
  - Abdominal pain [Unknown]
